FAERS Safety Report 10846062 (Version 1)
Quarter: 2015Q1

REPORT INFORMATION
  Report Type: Spontaneous
  Country: FR (occurrence: FR)
  Receive Date: 20150220
  Receipt Date: 20150220
  Transmission Date: 20150721
  Serious: Yes (Death)
  Sender: FDA-Public Use
  Company Number: FR-SA-2015SA018230

PATIENT
  Age: 66 Year
  Sex: Male

DRUGS (5)
  1. LOVENOX [Suspect]
     Active Substance: ENOXAPARIN SODIUM
     Indication: THROMBOSIS PROPHYLAXIS
     Dosage: SOLUTION
     Route: 058
     Dates: start: 20140606, end: 20140607
  2. IMOVANE [Suspect]
     Active Substance: ZOPICLONE
     Route: 048
     Dates: start: 20140605, end: 20140605
  3. PARACETAMOL [Suspect]
     Active Substance: ACETAMINOPHEN
     Route: 042
     Dates: start: 20140606
  4. XANAX [Suspect]
     Active Substance: ALPRAZOLAM
     Route: 048
  5. CYSVIEW [Suspect]
     Active Substance: HEXAMINOLEVULINATE HYDROCHLORIDE
     Indication: BLADDER OPERATION
     Dosage: ROUTE: IVA
     Dates: start: 20140606, end: 20140606

REACTIONS (1)
  - Cardio-respiratory arrest [Fatal]

NARRATIVE: CASE EVENT DATE: 20140607
